FAERS Safety Report 16994834 (Version 1)
Quarter: 2019Q4

REPORT INFORMATION
  Report Type: Spontaneous
  Country: US (occurrence: US)
  Receive Date: 20191105
  Receipt Date: 20191105
  Transmission Date: 20200122
  Serious: Yes (Other)
  Sender: FDA-Public Use
  Company Number: US-ELI_LILLY_AND_COMPANY-US201910013630

PATIENT
  Sex: Male

DRUGS (2)
  1. TRESIBA [Concomitant]
     Active Substance: INSULIN DEGLUDEC
     Indication: TYPE 2 DIABETES MELLITUS
  2. HUMALOG [Suspect]
     Active Substance: INSULIN LISPRO
     Indication: TYPE 2 DIABETES MELLITUS
     Dosage: 5 U, PRN (4-5)
     Route: 058
     Dates: start: 2016

REACTIONS (6)
  - Coronary artery occlusion [Unknown]
  - Balance disorder [Unknown]
  - Neuropathy peripheral [Unknown]
  - Communication disorder [Unknown]
  - Lymphoma [Unknown]
  - Fall [Unknown]

NARRATIVE: CASE EVENT DATE: 2017
